FAERS Safety Report 9250205 (Version 3)
Quarter: 2013Q2

REPORT INFORMATION
  Report Type: Report from Study
  Country: BE (occurrence: BE)
  Receive Date: 20130424
  Receipt Date: 20130606
  Transmission Date: 20140414
  Serious: Yes (Hospitalization)
  Sender: FDA-Public Use
  Company Number: BE-ROCHE-1217366

PATIENT
  Age: 66 Year
  Sex: Male

DRUGS (10)
  1. PEG-INTERFERON ALFA 2A [Suspect]
     Indication: HEPATITIS C
     Route: 058
     Dates: start: 20121125, end: 20130306
  2. RIBAVIRIN [Suspect]
     Indication: HEPATITIS C
     Route: 048
     Dates: start: 20121125, end: 20130306
  3. TELAPREVIR [Suspect]
     Indication: HEPATITIS C
     Route: 048
     Dates: start: 20121125, end: 20130220
  4. AMLOR [Concomitant]
     Indication: HYPERTENSION
     Route: 048
  5. NOVORAPID [Concomitant]
     Indication: DIABETES MELLITUS
     Dosage: 12-10-16E
     Route: 058
  6. METFORMAX [Concomitant]
     Indication: DIABETES MELLITUS
     Route: 048
  7. LANTUS [Concomitant]
     Indication: DIABETES MELLITUS
     Dosage: 24 E
     Route: 058
  8. COVERSYL [Concomitant]
     Indication: HYPERTENSION
     Route: 048
  9. ASAFLOW [Concomitant]
     Route: 065
  10. PRAREDUCT [Concomitant]
     Route: 065

REACTIONS (5)
  - Anaemia [Recovering/Resolving]
  - Hepatic cirrhosis [Recovered/Resolved]
  - Thrombocytopenia [Unknown]
  - Leukopenia [Unknown]
  - Helicobacter gastritis [Unknown]
